APPROVED DRUG PRODUCT: DERMATOP
Active Ingredient: PREDNICARBATE
Strength: 0.1% **Federal Register determination that product was not discontinued or withdrawn for safety or effectiveness reasons**
Dosage Form/Route: OINTMENT;TOPICAL
Application: N019568 | Product #001
Applicant: VALEANT PHARMACEUTICALS NORTH AMERICA LLC
Approved: Sep 23, 1991 | RLD: Yes | RS: No | Type: DISCN